FAERS Safety Report 7886431-6 (Version None)
Quarter: 2011Q4

REPORT INFORMATION
  Report Type: 
  Country: None (occurrence: None)
  Receive Date: 20111102
  Receipt Date: 20110705
  Transmission Date: 20120403
  Serious: No
  Sender: FDA-Public Use
  Company Number: US-AMGEN-USASP2011033912

PATIENT
  Sex: Female

DRUGS (3)
  1. ENBREL [Suspect]
     Indication: OSTEOARTHRITIS
  2. ENBREL [Suspect]
     Indication: RHEUMATOID ARTHRITIS
     Dosage: 50 MG, QWK
     Dates: start: 20100730, end: 20100914
  3. METHOTREXATE [Concomitant]
     Dates: start: 20100101

REACTIONS (4)
  - RHEUMATOID ARTHRITIS [None]
  - SINUSITIS [None]
  - INJECTION SITE RASH [None]
  - UPPER RESPIRATORY TRACT INFECTION [None]
